FAERS Safety Report 12443024 (Version 1)
Quarter: 2016Q2

REPORT INFORMATION
  Report Type: Spontaneous
  Country: US (occurrence: None)
  Receive Date: 20160606
  Receipt Date: 20160606
  Transmission Date: 20160815
  Serious: No
  Sender: FDA-Public Use
  Company Number: None

PATIENT
  Sex: Female

DRUGS (3)
  1. HUMALOG [Suspect]
     Active Substance: INSULIN LISPRO
  2. LANTUS [Suspect]
     Active Substance: INSULIN GLARGINE
  3. METFORMIN [Suspect]
     Active Substance: METFORMIN HYDROCHLORIDE

REACTIONS (9)
  - Myocardial infarction [None]
  - Neoplasm malignant [None]
  - Mastectomy [None]
  - Blood glucose abnormal [None]
  - Gastric disorder [None]
  - Hernia [None]
  - Feeling abnormal [None]
  - Cardiac failure congestive [None]
  - Drug dose omission [None]
